FAERS Safety Report 5001129-X (Version None)
Quarter: 2006Q2

REPORT INFORMATION
  Report Type: 
  Country: None (occurrence: None)
  Receive Date: 20060512
  Receipt Date: 20060503
  Transmission Date: 20061013
  Serious: Yes (Hospitalization)
  Sender: FDA-Public Use
  Company Number: 2006UW08847

PATIENT
  Age: 91 Year
  Sex: Male

DRUGS (1)
  1. DIPRIVAN [Suspect]

REACTIONS (1)
  - VENTRICULAR FIBRILLATION [None]
